FAERS Safety Report 14098128 (Version 1)
Quarter: 2017Q4

REPORT INFORMATION
  Report Type: Spontaneous
  Country: ZA (occurrence: ZA)
  Receive Date: 20171017
  Receipt Date: 20171017
  Transmission Date: 20180321
  Serious: Yes (Other)
  Sender: FDA-Public Use
  Company Number: ZA-BRISTOL-MYERS SQUIBB COMPANY-BMS-2017-092783

PATIENT
  Age: 45 Year
  Sex: Male

DRUGS (3)
  1. 3TC [Suspect]
     Active Substance: LAMIVUDINE
     Indication: HIV INFECTION
     Dosage: 150 MG, Q12H
     Route: 065
  2. EFAVIRENZ. [Suspect]
     Active Substance: EFAVIRENZ
     Indication: HIV INFECTION
     Dosage: 600 MG, QD
     Route: 065
  3. D4T [Suspect]
     Active Substance: STAVUDINE
     Indication: HIV INFECTION
     Dosage: 30 MG, Q12H
     Route: 065

REACTIONS (1)
  - Lipodystrophy acquired [Unknown]
